FAERS Safety Report 10877243 (Version 2)
Quarter: 2015Q1

REPORT INFORMATION
  Report Type: Report from Study
  Country: BE (occurrence: BE)
  Receive Date: 20150302
  Receipt Date: 20150309
  Transmission Date: 20150721
  Serious: Yes (Death, Life-Threatening, Hospitalization)
  Sender: FDA-Public Use
  Company Number: BE-EISAI MEDICAL RESEARCH-EC-2015-003331

PATIENT
  Age: 84 Year
  Sex: Male
  Weight: 84 kg

DRUGS (6)
  1. LENVATINIB [Suspect]
     Active Substance: LENVATINIB
     Indication: HEPATOCELLULAR CARCINOMA
     Dates: start: 20150112, end: 20150118
  2. FRAXIPARINE [Concomitant]
     Active Substance: NADROPARIN CALCIUM
  3. SPIRONOLACTONE. [Concomitant]
     Active Substance: SPIRONOLACTONE
  4. FUROSEMIDE. [Concomitant]
     Active Substance: FUROSEMIDE
  5. PANTOMED [Concomitant]
     Active Substance: DEXPANTHENOL
  6. TENORETIC [Concomitant]
     Active Substance: ATENOLOL\CHLORTHALIDONE

REACTIONS (1)
  - Hepatic encephalopathy [Fatal]

NARRATIVE: CASE EVENT DATE: 20150118
